FAERS Safety Report 18601560 (Version 1)
Quarter: 2020Q4

REPORT INFORMATION
  Report Type: Spontaneous
  Country: US (occurrence: US)
  Receive Date: 20201210
  Receipt Date: 20201210
  Transmission Date: 20210114
  Serious: No
  Sender: FDA-Public Use
  Company Number: US-PFIZER INC-2020485576

PATIENT
  Age: 70 Year
  Sex: Female
  Weight: 63.5 kg

DRUGS (1)
  1. NORVASC [Suspect]
     Active Substance: AMLODIPINE BESYLATE
     Indication: HYPERTENSION
     Dosage: 1.5 TABLETS A DAY
     Route: 048

REACTIONS (1)
  - Therapeutic product effect incomplete [Unknown]
